FAERS Safety Report 5591126-8 (Version None)
Quarter: 2008Q1

REPORT INFORMATION
  Report Type: 
  Country: None (occurrence: None)
  Receive Date: 20080110
  Receipt Date: 20080110
  Transmission Date: 20080703
  Serious: Yes (Hospitalization)
  Sender: FDA-Public Use
  Company Number: None

PATIENT
  Sex: Female
  Weight: 75.3 kg

DRUGS (9)
  1. CYCLOPHOSPHAMIDE [Suspect]
     Dosage: 3200 MG
  2. DOXORUBICIN HYDROCHLORIDE [Suspect]
     Dosage: 80 MG
  3. G-CSF (FILGRASTIM, AMGEN) [Suspect]
     Dosage: 7680 MG
     Dates: end: 20071220
  4. LEUCOVORIN CALCIUM [Suspect]
     Dosage: 255 MG
     Dates: end: 20071205
  5. MESNA [Suspect]
     Dosage: 3800 MG
     Dates: end: 20071204
  6. METHOTREXATE [Suspect]
     Dosage: 293 MG
  7. PREDNISONE TAB [Suspect]
     Dosage: 800 MG
  8. RITUXIMAB (MOAB C2B8 ANTI CD20, CHIMERIC) [Suspect]
     Dosage: 600 MG
  9. VINCRISTINE SULFATE [Suspect]
     Dosage: 2 MG

REACTIONS (5)
  - BLOOD PRESSURE INCREASED [None]
  - HAEMOGLOBIN DECREASED [None]
  - NEUTROPHIL COUNT DECREASED [None]
  - PLATELET COUNT DECREASED [None]
  - PSEUDOMONAS INFECTION [None]
